FAERS Safety Report 6772426-2 (Version None)
Quarter: 2010Q2

REPORT INFORMATION
  Report Type: 
  Country: None (occurrence: None)
  Receive Date: 20100616
  Receipt Date: 20100305
  Transmission Date: 20101027
  Serious: No
  Sender: FDA-Public Use
  Company Number: US-ASTRAZENECA-2010SE09702

PATIENT
  Age: 80 Year
  Sex: Female
  Weight: 65.3 kg

DRUGS (7)
  1. PULMICORT RESPULES [Suspect]
     Indication: BRONCHITIS CHRONIC
     Route: 055
     Dates: start: 20100201, end: 20100301
  2. PULMICORT RESPULES [Suspect]
     Indication: EMPHYSEMA
     Route: 055
     Dates: start: 20100201, end: 20100301
  3. SYNTHROID [Concomitant]
     Indication: THYROID DISORDER
  4. HIGH BLOOD PRESSURE PILLS [Concomitant]
     Indication: HYPERTENSION
  5. BROVANA [Concomitant]
     Indication: BRONCHITIS CHRONIC
  6. BROVANA [Concomitant]
     Indication: EMPHYSEMA
  7. ADVAIR DISKUS 100/50 [Concomitant]

REACTIONS (1)
  - DRY MOUTH [None]
